FAERS Safety Report 5856354-2 (Version None)
Quarter: 2008Q3

REPORT INFORMATION
  Report Type: 
  Country: None (occurrence: None)
  Receive Date: 20080821
  Receipt Date: 20080821
  Transmission Date: 20090109
  Serious: Yes (Other)
  Sender: FDA-Public Use
  Company Number: None

PATIENT
  Age: 53 Year
  Sex: Female
  Weight: 65.7716 kg

DRUGS (2)
  1. LYRICA [Suspect]
     Indication: MIGRAINE
     Dosage: 75 MG 1 MORNING , 2 QHS PO
     Route: 048
     Dates: start: 20060906, end: 20080321
  2. LYRICA [Suspect]
     Indication: NEURALGIA
     Dosage: 75 MG 1 MORNING , 2 QHS PO
     Route: 048
     Dates: start: 20060906, end: 20080321

REACTIONS (1)
  - VISION BLURRED [None]
